FAERS Safety Report 9783435 (Version 2)
Quarter: 2013Q4

REPORT INFORMATION
  Report Type: Spontaneous
  Country: FR (occurrence: FR)
  Receive Date: 20131226
  Receipt Date: 20131230
  Transmission Date: 20140711
  Serious: Yes (Death)
  Sender: FDA-Public Use
  Company Number: FR-PFIZER INC-2013365817

PATIENT
  Age: 7 Month
  Sex: Female
  Weight: 8 kg

DRUGS (3)
  1. DILANTIN [Suspect]
     Indication: CONVULSION PROPHYLAXIS
     Dosage: 120 MG, SINGLE
     Route: 041
     Dates: start: 20131030, end: 20131030
  2. NUBAIN [Concomitant]
     Dosage: 1.6 MG, UNK
     Route: 042
     Dates: start: 20131029, end: 20131029
  3. AUGMENTIN [Concomitant]
     Dosage: 220 MG, UNK
     Route: 042
     Dates: start: 20131030, end: 20131030

REACTIONS (3)
  - Supraventricular tachycardia [Fatal]
  - Cardiac arrest [Fatal]
  - Clonus [Unknown]
